FAERS Safety Report 7830831-7 (Version None)
Quarter: 2011Q4

REPORT INFORMATION
  Report Type: 
  Country: None (occurrence: None)
  Receive Date: 20111021
  Receipt Date: 20111014
  Transmission Date: 20120403
  Serious: Yes (Other)
  Sender: FDA-Public Use
  Company Number: AT-GLAXOSMITHKLINE-B0757215A

PATIENT
  Age: 51 Year
  Sex: Male

DRUGS (2)
  1. SEROQUEL [Suspect]
     Indication: PRODUCT USED FOR UNKNOWN INDICATION
  2. LAMICTAL [Suspect]
     Indication: BIPOLAR DISORDER
     Dosage: 200MG PER DAY

REACTIONS (2)
  - OVERDOSE [None]
  - CONGESTIVE CARDIOMYOPATHY [None]
